FAERS Safety Report 23550881 (Version 4)
Quarter: 2025Q2

REPORT INFORMATION
  Report Type: Report from Study
  Country: GB (occurrence: GB)
  Receive Date: 20240221
  Receipt Date: 20250416
  Transmission Date: 20250717
  Serious: Yes (Hospitalization)
  Sender: ABBVIE
  Company Number: GB-ABBVIE-5646629

PATIENT
  Age: 63 Year
  Sex: Male
  Weight: 68.5 kg

DRUGS (6)
  1. UPADACITINIB [Suspect]
     Active Substance: UPADACITINIB
     Indication: Colitis ulcerative
     Route: 048
     Dates: start: 20230526, end: 20231214
  2. SYMBICORT [Concomitant]
     Active Substance: BUDESONIDE\FORMOTEROL FUMARATE DIHYDRATE
     Indication: Asthma
     Dosage: DOSE UNIT: 2 PUFF
     Route: 055
     Dates: start: 20180806
  3. LEVOTHYROXINE [Concomitant]
     Active Substance: LEVOTHYROXINE
     Indication: Hypothyroidism
     Dosage: DOSE UNIT: 100 MCG/G
     Route: 048
     Dates: start: 20180806
  4. ASACOL [Concomitant]
     Active Substance: MESALAMINE
     Indication: Colitis ulcerative
     Route: 048
     Dates: start: 20220712
  5. ATORVASTATIN [Concomitant]
     Active Substance: ATORVASTATIN
     Indication: Hyperlipidaemia
     Route: 048
     Dates: start: 20230713
  6. MESALAMINE [Concomitant]
     Active Substance: MESALAMINE
     Indication: Colitis ulcerative
     Dosage: 2.4 GM
     Route: 048
     Dates: start: 202311, end: 20240207

REACTIONS (3)
  - Proctectomy [Recovered/Resolved with Sequelae]
  - Laparoscopy [Recovered/Resolved with Sequelae]
  - Colectomy [Recovered/Resolved with Sequelae]

NARRATIVE: CASE EVENT DATE: 20240207
